FAERS Safety Report 9397471 (Version 1)
Quarter: 2013Q3

REPORT INFORMATION
  Report Type: Spontaneous
  Country: US (occurrence: US)
  Receive Date: 20130712
  Receipt Date: 20130712
  Transmission Date: 20140515
  Serious: Yes (Disabling)
  Sender: FDA-Public Use
  Company Number: US-PFIZER INC-2013204072

PATIENT
  Age: 55 Year
  Sex: Male
  Weight: 109 kg

DRUGS (2)
  1. GABAPENTIN [Suspect]
     Indication: NEUROPATHY PERIPHERAL
     Dosage: 300-400 MG, 4X/DAY
     Route: 048
  2. GABAPENTIN [Suspect]
     Indication: NEURITIS
     Dosage: 800 MG, 4X/DAY
     Route: 048
     Dates: start: 201306

REACTIONS (5)
  - Neuropathy peripheral [Unknown]
  - Neuralgia [Unknown]
  - Hand deformity [Unknown]
  - Finger deformity [Unknown]
  - Joint range of motion decreased [Unknown]
